FAERS Safety Report 5500166-6 (Version None)
Quarter: 2007Q4

REPORT INFORMATION
  Report Type: 
  Country: None (occurrence: None)
  Receive Date: 20071025
  Receipt Date: 20071011
  Transmission Date: 20080405
  Serious: Yes (Hospitalization)
  Sender: FDA-Public Use
  Company Number: DSA_30753_2007

PATIENT
  Sex: Female

DRUGS (5)
  1. LORAZEPAM [Suspect]
     Dosage: ORAL
     Route: 048
     Dates: start: 20071011, end: 20071011
  2. ETHANOL (VODKA - ETHANOL) [Suspect]
     Dosage: ORAL
     Route: 048
     Dates: start: 20071011, end: 20071011
  3. DIAZEPAM [Suspect]
     Dosage: (150 MG 1X ORAL)
     Route: 048
     Dates: start: 20071011, end: 20071011
  4. PROMETHAZINE [Suspect]
     Dosage: 250 MG 1X ORAL
     Route: 048
     Dates: start: 20071011, end: 20071011
  5. ZYPREXA [Suspect]
     Dosage: 35 MG 1X ORAL
     Route: 048
     Dates: start: 20071011, end: 20071011

REACTIONS (2)
  - MULTIPLE DRUG OVERDOSE ACCIDENTAL [None]
  - SOMNOLENCE [None]
